FAERS Safety Report 9863095 (Version 1)
Quarter: 2014Q1

REPORT INFORMATION
  Report Type: Spontaneous
  Country: US (occurrence: US)
  Receive Date: 20140203
  Receipt Date: 20140203
  Transmission Date: 20141002
  Serious: Yes (Other)
  Sender: FDA-Public Use
  Company Number: US-BAYER-2014-014910

PATIENT
  Age: 43 Year
  Sex: Female

DRUGS (3)
  1. MIRENA [Suspect]
     Indication: CONTRACEPTION
     Dosage: 20 MCG/24HR, CONT
     Route: 015
  2. MIRENA [Suspect]
     Indication: MENORRHAGIA
     Dosage: 20 MCG/24HR, CONT
     Route: 015
  3. MIRENA [Suspect]
     Indication: ABDOMINAL PAIN
     Dosage: 20 MCG/24HR, CONT
     Route: 015
     Dates: start: 20131209

REACTIONS (12)
  - Procedural haemorrhage [None]
  - Procedural pain [None]
  - Procedural haemorrhage [None]
  - Procedural pain [None]
  - Procedural pain [None]
  - Procedural haemorrhage [Recovered/Resolved]
  - Asthenia [None]
  - Pelvic pain [None]
  - Dizziness [None]
  - Infection [None]
  - Genital haemorrhage [Not Recovered/Not Resolved]
  - Breast mass [None]
